FAERS Safety Report 9693921 (Version 1)
Quarter: 2013Q4

REPORT INFORMATION
  Report Type: Spontaneous
  Country: AU (occurrence: AU)
  Receive Date: 20131118
  Receipt Date: 20131118
  Transmission Date: 20140711
  Serious: Yes (Other)
  Sender: FDA-Public Use
  Company Number: AU-ABBVIE-13P-008-1157758-00

PATIENT
  Age: 19 Year
  Sex: Female

DRUGS (3)
  1. EPILIM [Suspect]
     Indication: PRODUCT USED FOR UNKNOWN INDICATION
  2. KEFLEX [Suspect]
     Indication: PRODUCT USED FOR UNKNOWN INDICATION
  3. ETHINYLESTRADIOL/NORETHISTERONE [Suspect]
     Indication: PRODUCT USED FOR UNKNOWN INDICATION

REACTIONS (6)
  - Ascites [Unknown]
  - Autoimmune hepatitis [Unknown]
  - Pyrexia [Unknown]
  - Abdominal distension [Unknown]
  - Chills [Unknown]
  - Abdominal pain [Unknown]
